FAERS Safety Report 4634881-3 (Version None)
Quarter: 2005Q2

REPORT INFORMATION
  Report Type: 
  Country: None (occurrence: None)
  Receive Date: 20050412
  Receipt Date: 20050329
  Transmission Date: 20051028
  Serious: Yes (Hospitalization)
  Sender: FDA-Public Use
  Company Number: 2005CG00638

PATIENT
  Age: 78 Year
  Sex: Male

DRUGS (1)
  1. XYLOCAINE VISCOUS [Suspect]
     Dates: start: 20050218, end: 20050218

REACTIONS (3)
  - ANAESTHETIC COMPLICATION [None]
  - ENDOPHTHALMITIS [None]
  - OFF LABEL USE [None]
